FAERS Safety Report 9859913 (Version 1)
Quarter: 2014Q1

REPORT INFORMATION
  Report Type: Spontaneous
  Country: US (occurrence: US)
  Receive Date: 20140131
  Receipt Date: 20140131
  Transmission Date: 20141002
  Serious: Yes (Other)
  Sender: FDA-Public Use
  Company Number: US-TEVA-459574USA

PATIENT
  Sex: Male

DRUGS (1)
  1. PARAGARD 380A [Suspect]

REACTIONS (1)
  - Penile haemorrhage [Unknown]
